FAERS Safety Report 17521238 (Version 1)
Quarter: 2020Q1

REPORT INFORMATION
  Report Type: Spontaneous
  Country: NL (occurrence: NL)
  Receive Date: 20200310
  Receipt Date: 20200310
  Transmission Date: 20200409
  Serious: Yes (Death, Hospitalization)
  Sender: FDA-Public Use
  Company Number: NL-MYLANLABS-2020M1025729

PATIENT
  Age: 44 Year
  Sex: Female

DRUGS (3)
  1. ACETYLCYSTEINE. [Suspect]
     Active Substance: ACETYLCYSTEINE
     Indication: TOXICITY TO VARIOUS AGENTS
     Route: 042
  2. ACETYLCYSTEINE. [Suspect]
     Active Substance: ACETYLCYSTEINE
     Dosage: CONTINUOUS INTRAVENOUS DRIP FOR 24 HOURS
     Route: 042
  3. PARACETAMOL [Suspect]
     Active Substance: ACETAMINOPHEN
     Indication: PRODUCT USED FOR UNKNOWN INDICATION
     Dosage: 50 GRAM
     Route: 048

REACTIONS (6)
  - Toxicity to various agents [Fatal]
  - Coagulopathy [Fatal]
  - Overdose [Fatal]
  - Acute hepatic failure [Fatal]
  - Drug ineffective [Fatal]
  - Lactic acidosis [Unknown]
